FAERS Safety Report 9012597 (Version 2)
Quarter: 2013Q4

REPORT INFORMATION
  Report Type: Spontaneous
  Country: IL (occurrence: IL)
  Receive Date: 20130114
  Receipt Date: 20131029
  Transmission Date: 20140711
  Serious: Yes (Hospitalization, Other)
  Sender: FDA-Public Use
  Company Number: IL-VERTEX PHARMACEUTICALS INC.-2013-000496

PATIENT
  Age: 54 Year
  Sex: Female
  Weight: 62 kg

DRUGS (3)
  1. INCIVO [Suspect]
     Indication: HEPATITIS C
     Dosage: 2250 (UNITS UNSPECIFIED)
     Route: 048
     Dates: start: 20121003, end: 20121025
  2. PEGINTERFERON ALFA-2A [Suspect]
     Indication: HEPATITIS C
     Dosage: DOSAGE FORM: UNKNOWN, 180 (UNITS UNSPECIFIED)
     Route: 058
     Dates: start: 20121003, end: 20121026
  3. RIBAVIRIN [Suspect]
     Indication: HEPATITIS C
     Dosage: DOSAGE FORM: UNKNOWN, 1000 (UNITS UNSPECIFIED)
     Route: 048
     Dates: start: 20121003, end: 20121025

REACTIONS (5)
  - Skin lesion [Recovered/Resolved]
  - Pyrexia [Recovered/Resolved]
  - Neutrophil count decreased [Unknown]
  - Rash [Recovered/Resolved]
  - Haemoglobin decreased [Unknown]
